FAERS Safety Report 16719702 (Version 11)
Quarter: 2021Q1

REPORT INFORMATION
  Report Type: Spontaneous
  Country: US (occurrence: US)
  Receive Date: 20190820
  Receipt Date: 20210114
  Transmission Date: 20210419
  Serious: Yes (Hospitalization, Other)
  Sender: FDA-Public Use
  Company Number: US-PFIZER INC-2019351861

PATIENT
  Age: 59 Year
  Sex: Female
  Weight: 84 kg

DRUGS (14)
  1. HYDROCODONE [Concomitant]
     Active Substance: HYDROCODONE
     Indication: HYPOAESTHESIA
     Dosage: UNK, 4X/DAY [ACETAMINOPHEN?325MG]/[HYDROCODONE?7.5MG] (EVERY 6 HOURS)
     Dates: start: 201907
  2. LYRICA [Suspect]
     Active Substance: PREGABALIN
     Indication: PAIN IN EXTREMITY
  3. LYRICA [Suspect]
     Active Substance: PREGABALIN
     Indication: NEUROPATHY PERIPHERAL
  4. NORCO [Concomitant]
     Active Substance: ACETAMINOPHEN\HYDROCODONE BITARTRATE
     Dosage: UNK [ACETAMINOPHEN?325MG]/[HYDROCODONE?7.5MG]
     Dates: start: 201907
  5. TIZANIDINE. [Concomitant]
     Active Substance: TIZANIDINE
     Indication: MUSCLE RELAXANT THERAPY
     Dosage: 2 MG, 3X/DAY
     Dates: start: 20190504, end: 2019
  6. LYRICA [Suspect]
     Active Substance: PREGABALIN
     Indication: HYPOAESTHESIA
     Dosage: 200 MG, 3X/DAY (EVERY 8 HOURS; DISP 90 (NINETY), TAKE 1 CAPSULE 3 TIMES A DAY)
     Route: 048
     Dates: start: 20200304, end: 202003
  7. LYRICA [Suspect]
     Active Substance: PREGABALIN
     Indication: NEUROPATHY PERIPHERAL
     Dosage: 200 MG, 3X/DAY (EVERY 8 HOURS; DISP 90 (NINETY), TAKE 1 CAPSULE 3 TIMES A DAY)
     Route: 048
     Dates: start: 2015
  8. EFFEXOR [Concomitant]
     Active Substance: VENLAFAXINE HYDROCHLORIDE
     Indication: ANTIDEPRESSANT THERAPY
     Dosage: 225 MG, 1X/DAY (150 MG AND 75 MG ONCE A DAY)
     Dates: start: 201802
  9. PAROXETINE. [Concomitant]
     Active Substance: PAROXETINE
     Indication: ANTIDEPRESSANT THERAPY
     Dosage: 40 MG, 1X/DAY
     Dates: start: 201802
  10. SIMVASTATIN. [Concomitant]
     Active Substance: SIMVASTATIN
     Dosage: 20 MG, 1X/DAY (ONE DAILY AT BEDTIME)
     Dates: start: 2011
  11. HYDROCODONE [Concomitant]
     Active Substance: HYDROCODONE
     Indication: PAIN IN EXTREMITY
  12. AMITRIPTYLINE [Concomitant]
     Active Substance: AMITRIPTYLINE
     Indication: ANTIDEPRESSANT THERAPY
     Dosage: 50 MG, 1X/DAY (EVERY EVENING)
     Dates: start: 2015
  13. METFORMIN [Concomitant]
     Active Substance: METFORMIN HYDROCHLORIDE
     Dosage: 500 MG, 2X/DAY (1 IN THE MORNING AND 1 IN THE EVENING)
     Dates: start: 2011
  14. TIZANIDINE. [Concomitant]
     Active Substance: TIZANIDINE
     Dosage: UNK
     Dates: end: 201907

REACTIONS (10)
  - Prescribed overdose [Unknown]
  - Spinal fracture [Not Recovered/Not Resolved]
  - Dizziness [Unknown]
  - Dysarthria [Unknown]
  - Memory impairment [Unknown]
  - Confusional state [Unknown]
  - Crying [Unknown]
  - Thinking abnormal [Not Recovered/Not Resolved]
  - Fall [Not Recovered/Not Resolved]
  - Formication [Unknown]

NARRATIVE: CASE EVENT DATE: 2017
